FAERS Safety Report 10553166 (Version 1)
Quarter: 2014Q4

REPORT INFORMATION
  Report Type: Report from Study
  Country: US (occurrence: US)
  Receive Date: 20141030
  Receipt Date: 20141030
  Transmission Date: 20150529
  Serious: No
  Sender: FDA-Public Use
  Company Number: US-AMGEN INC.-USASL2014082843

PATIENT
  Age: 60 Year
  Sex: Male
  Weight: 80.27 kg

DRUGS (3)
  1. DIOVAN [Concomitant]
     Active Substance: VALSARTAN
     Dosage: 160 MG, UNK
  2. ENBREL [Suspect]
     Active Substance: ETANERCEPT
     Indication: PRODUCT USED FOR UNKNOWN INDICATION
     Dosage: 50 MG, QWK
     Route: 058
     Dates: start: 201303
  3. ASPIRIN CHILDREN [Concomitant]
     Dosage: 81 MG, UNK

REACTIONS (2)
  - Blood triglycerides increased [Recovering/Resolving]
  - Psoriasis [Recovering/Resolving]
